FAERS Safety Report 6676449-3 (Version None)
Quarter: 2010Q2

REPORT INFORMATION
  Report Type: 
  Country: None (occurrence: None)
  Receive Date: 20100412
  Receipt Date: 20100401
  Transmission Date: 20101027
  Serious: Yes (Other)
  Sender: FDA-Public Use
  Company Number: PHHY2010CA19404

PATIENT
  Sex: Male

DRUGS (9)
  1. CLOZARIL [Suspect]
     Dosage: UNK
     Dates: start: 20080911, end: 20081016
  2. SEROQUEL XR [Concomitant]
     Dosage: 1200 MG QHS
     Route: 048
  3. EPIVAL [Concomitant]
     Dosage: 250 MG BID
     Route: 048
  4. HALDOL [Concomitant]
     Dosage: 4 MG QHS
     Route: 048
  5. RISPERDAL [Concomitant]
  6. ZYPREXA [Concomitant]
  7. HALDOL [Concomitant]
     Route: 030
  8. ZIPRASIDONE HCL [Concomitant]
  9. WELLBUTRIN [Concomitant]

REACTIONS (5)
  - HALLUCINATION, AUDITORY [None]
  - HALLUCINATION, TACTILE [None]
  - PSORIASIS [None]
  - PSYCHOTIC DISORDER [None]
  - ROAD TRAFFIC ACCIDENT [None]
